FAERS Safety Report 8476625-3 (Version None)
Quarter: 2012Q2

REPORT INFORMATION
  Report Type: 
  Country: None (occurrence: None)
  Receive Date: 20120628
  Receipt Date: 20120622
  Transmission Date: 20120825
  Serious: No
  Sender: FDA-Public Use
  Company Number: US-B.I. PHARMACEUTICALS,INC./RIDGEFIELD-2012-BP-14300BP

PATIENT
  Age: 5 Year
  Sex: Male

DRUGS (1)
  1. ZANTAC [Suspect]
     Indication: ABDOMINAL DISCOMFORT
     Route: 048
     Dates: start: 20120620, end: 20120621

REACTIONS (2)
  - NAUSEA [None]
  - OEDEMA PERIPHERAL [None]
